FAERS Safety Report 5535436-9 (Version None)
Quarter: 2007Q4

REPORT INFORMATION
  Report Type: 
  Country: None (occurrence: None)
  Receive Date: 20071206
  Receipt Date: 20071126
  Transmission Date: 20080405
  Serious: Yes (Hospitalization, Disabling)
  Sender: FDA-Public Use
  Company Number: TR-PFIZER INC-2007100339

PATIENT
  Age: 40 Year
  Sex: Male

DRUGS (7)
  1. AMLODIPINE [Suspect]
     Indication: MALIGNANT HYPERTENSION
  2. DOXAZOSIN MESYLATE [Suspect]
     Indication: MALIGNANT HYPERTENSION
     Dosage: DAILY DOSE:4MG
  3. ATENOLOL [Suspect]
     Indication: MALIGNANT HYPERTENSION
  4. CHLORTHALIDONE [Suspect]
     Indication: MALIGNANT HYPERTENSION
  5. CAPTOPRIL [Suspect]
     Indication: MALIGNANT HYPERTENSION
     Dosage: DAILY DOSE:25MG
     Route: 060
  6. CAPTOPRIL [Suspect]
     Route: 060
  7. FUROSEMIDE [Suspect]
     Indication: MALIGNANT HYPERTENSION
     Dosage: TEXT:1 SHOT GIVEN
     Route: 042

REACTIONS (1)
  - BLINDNESS [None]
